FAERS Safety Report 17830791 (Version 2)
Quarter: 2020Q3

REPORT INFORMATION
  Report Type: Spontaneous
  Country: US (occurrence: US)
  Receive Date: 20200527
  Receipt Date: 20200707
  Transmission Date: 20201103
  Serious: No
  Sender: FDA-Public Use
  Company Number: US-BIOGEN-2020BI00879108

PATIENT
  Sex: Female

DRUGS (1)
  1. SPINRAZA [Suspect]
     Active Substance: NUSINERSEN
     Indication: SPINAL MUSCULAR ATROPHY
     Route: 065

REACTIONS (8)
  - Decreased appetite [Unknown]
  - Neurological procedural complication [Not Recovered/Not Resolved]
  - Somnolence [Not Recovered/Not Resolved]
  - Neck pain [Unknown]
  - Pyrexia [Unknown]
  - Migraine [Not Recovered/Not Resolved]
  - Vomiting [Unknown]
  - Pain in extremity [Not Recovered/Not Resolved]
